FAERS Safety Report 8988248 (Version 2)
Quarter: 2013Q1

REPORT INFORMATION
  Report Type: Spontaneous
  Country: US (occurrence: US)
  Receive Date: 20121227
  Receipt Date: 20130130
  Transmission Date: 20140127
  Serious: Yes (Other)
  Sender: FDA-Public Use
  Company Number: US-BAYER-2012-135324

PATIENT
  Age: 69 Year
  Sex: Male
  Weight: 82 kg

DRUGS (18)
  1. TRASYLOL [Suspect]
     Indication: CAROTID ENDARTERECTOMY
     Dosage: TEST DOSE: CARDIOPULMONARY BYPASS PUMP PRIME: 280MG
     Route: 042
     Dates: start: 20041104, end: 20041104
  2. TRASYLOL [Suspect]
     Indication: CORONARY ARTERY BYPASS
  3. LOPRESSOR [Concomitant]
     Dosage: 100 MG, BID
     Route: 048
  4. PRAVASTATIN [Concomitant]
     Dosage: 20 MG, QD
  5. PROCARDIA [Concomitant]
     Dosage: 60 MG, QD
     Route: 048
  6. ECOTRIN [Concomitant]
     Dosage: 1 DF, QD
     Route: 048
  7. PROSCAR [Concomitant]
     Dosage: 5 MG, QD
     Route: 048
  8. FORANE [Concomitant]
     Dosage: UNK
     Dates: start: 20041104, end: 20041104
  9. FENTANYL [Concomitant]
     Dosage: UNK
     Dates: start: 20041104, end: 20041104
  10. VERSED [Concomitant]
     Dosage: UNK
     Dates: start: 20041104, end: 20041104
  11. NITROGLYCERIN [Concomitant]
     Dosage: UNK
     Dates: start: 20041104, end: 20041104
  12. HEPARIN [Concomitant]
     Dosage: UNK
     Dates: start: 20041104, end: 20041104
  13. SODIUM BICARBONATE [Concomitant]
     Dosage: UNK
     Dates: start: 20041104, end: 20041104
  14. EPINEPHRINE [Concomitant]
     Dosage: UNK
     Dates: start: 20041104, end: 20041104
  15. LEVOPHED [Concomitant]
     Dosage: UNK
     Dates: start: 20041104, end: 20041104
  16. AMIODARONE [Concomitant]
     Dosage: UNK
     Dates: start: 20041104, end: 20041104
  17. PACKED RED BLOOD CELLS [Concomitant]
     Dosage: UNK
     Dates: start: 20041104, end: 20041104
  18. DIGOXIN [Concomitant]

REACTIONS (3)
  - Renal failure acute [None]
  - Cardiac failure congestive [None]
  - Off label use [None]
